FAERS Safety Report 8851942 (Version 1)
Quarter: 2012Q4

REPORT INFORMATION
  Report Type: 
  Country: US (occurrence: US)
  Receive Date: 20121022
  Receipt Date: 20121022
  Transmission Date: 20130627
  Serious: Yes (Hospitalization, Other)
  Sender: FDA-Public Use
  Company Number: US-ELI_LILLY_AND_COMPANY-US201210003861

PATIENT
  Age: 45 Year
  Sex: Female

DRUGS (2)
  1. CYMBALTA [Suspect]
     Indication: DEPRESSION
     Dosage: 30 mg, UNK
     Dates: start: 201204
  2. CYMBALTA [Suspect]
     Dosage: 60 mg, qd

REACTIONS (3)
  - Upper limb fracture [Unknown]
  - Fall [Unknown]
  - Dizziness [Recovered/Resolved]
